FAERS Safety Report 4314204-X (Version None)
Quarter: 2004Q1

REPORT INFORMATION
  Report Type: 
  Country: None (occurrence: None)
  Receive Date: 20040308
  Receipt Date: 20040308
  Transmission Date: 20041129
  Serious: Yes (Hospitalization)
  Sender: FDA-Public Use
  Company Number: None

PATIENT
  Sex: Female

DRUGS (17)
  1. ENALAPRIL MALEATE [Suspect]
     Indication: BLOOD PRESSURE INCREASED
     Dosage: 2.5 MG DAILY ORAL
     Route: 048
     Dates: start: 20040108, end: 20040109
  2. ENALAPRIL MALEATE [Suspect]
     Dosage: 5 MG DAILY ORAL
     Route: 048
     Dates: start: 20040109, end: 20040110
  3. REGULAR INSULIN SLIDING SCALE [Concomitant]
  4. CARDIZEM [Concomitant]
  5. HEPARIN [Concomitant]
  6. ASPIRIN [Concomitant]
  7. PLAVIX [Concomitant]
  8. INTEGRILIN [Concomitant]
  9. GLYBURIDE [Concomitant]
  10. SYNTHROID [Concomitant]
  11. REGLAN [Concomitant]
  12. PROTONIX [Concomitant]
  13. UNASYN [Concomitant]
  14. DIGOXIN [Concomitant]
  15. COREG [Concomitant]
  16. KCL TAB [Concomitant]
  17. LOVENOX [Concomitant]

REACTIONS (1)
  - PANCREATITIS ACUTE [None]
